FAERS Safety Report 7666647-4 (Version None)
Quarter: 2011Q3

REPORT INFORMATION
  Report Type: 
  Country: None (occurrence: None)
  Receive Date: 20110806
  Receipt Date: 20110330
  Transmission Date: 20111222
  Serious: No
  Sender: FDA-Public Use
  Company Number: US-ABBOTT-11P-163-0715480-00

PATIENT
  Sex: Female
  Weight: 90.8 kg

DRUGS (3)
  1. NIASPAN [Suspect]
     Indication: BLOOD CHOLESTEROL
  2. LEVOTHYROXINE SODIUM [Concomitant]
     Indication: PRODUCT USED FOR UNKNOWN INDICATION
  3. M.V.I. [Concomitant]
     Indication: PRODUCT USED FOR UNKNOWN INDICATION

REACTIONS (8)
  - DIARRHOEA [None]
  - FLUSHING [None]
  - INSOMNIA [None]
  - MIDDLE INSOMNIA [None]
  - COUGH [None]
  - HYPERHIDROSIS [None]
  - RECTAL HAEMORRHAGE [None]
  - PROCTALGIA [None]
